FAERS Safety Report 7413664-5 (Version None)
Quarter: 2011Q2

REPORT INFORMATION
  Report Type: 
  Country: None (occurrence: None)
  Receive Date: 20110413
  Receipt Date: 20110309
  Transmission Date: 20111010
  Serious: Yes (Hospitalization, Other)
  Sender: FDA-Public Use
  Company Number: US-BAYER-201037883NA

PATIENT
  Age: 23 Year
  Sex: Female
  Weight: 97.506 kg

DRUGS (2)
  1. YAZ [Suspect]
     Indication: POLYCYSTIC OVARIES
     Dosage: UNK UNK, QD
     Route: 048
     Dates: start: 20080801, end: 20080912
  2. YAZ [Suspect]
     Indication: MENSTRUATION IRREGULAR

REACTIONS (9)
  - CHEST DISCOMFORT [None]
  - PULMONARY EMBOLISM [None]
  - EMOTIONAL DISTRESS [None]
  - DYSPNOEA [None]
  - CHEST PAIN [None]
  - ANXIETY DISORDER DUE TO A GENERAL MEDICAL CONDITION [None]
  - NAUSEA [None]
  - DIZZINESS [None]
  - HEADACHE [None]
